FAERS Safety Report 9306295 (Version 2)
Quarter: 2013Q2

REPORT INFORMATION
  Report Type: Spontaneous
  Country: ZA (occurrence: ZA)
  Receive Date: 20130523
  Receipt Date: 20130610
  Transmission Date: 20140414
  Serious: Yes (Disabling)
  Sender: FDA-Public Use
  Company Number: ZA-ASTRAZENECA-2013SE34568

PATIENT
  Age: 15001 Day
  Sex: Male
  Weight: 80 kg

DRUGS (1)
  1. CRESTOR [Suspect]
     Route: 048
     Dates: start: 2010, end: 20130406

REACTIONS (2)
  - Ligament injury [Recovering/Resolving]
  - Intentional drug misuse [Unknown]
